APPROVED DRUG PRODUCT: BUTENAFINE HYDROCHLORIDE
Active Ingredient: BUTENAFINE HYDROCHLORIDE
Strength: 1%
Dosage Form/Route: CREAM;TOPICAL
Application: A205181 | Product #001
Applicant: SUN PHARMA CANADA INC
Approved: Nov 16, 2017 | RLD: No | RS: No | Type: OTC